FAERS Safety Report 4649143-8 (Version None)
Quarter: 2005Q2

REPORT INFORMATION
  Report Type: 
  Country: None (occurrence: None)
  Receive Date: 20050429
  Receipt Date: 20040819
  Transmission Date: 20051028
  Serious: Yes (Death, Life-Threatening, Hospitalization)
  Sender: FDA-Public Use
  Company Number: 138517

PATIENT
  Age: 66 Year
  Sex: Female

DRUGS (4)
  1. LAMICTAL [Suspect]
     Indication: EPILEPSY
     Dosage: 75MG PER DAY
     Route: 048
     Dates: start: 20040627, end: 20040713
  2. FRISIUM [Concomitant]
     Indication: EPILEPSY
     Dosage: 20MG PER DAY
     Route: 048
     Dates: start: 20040626, end: 20040712
  3. DIPYRONE TAB [Concomitant]
     Dosage: 20DROP AS REQUIRED
     Route: 048
  4. PRIMIDONE [Concomitant]
     Indication: EPILEPSY
     Route: 048
     Dates: end: 20040101

REACTIONS (17)
  - ACUTE RESPIRATORY DISTRESS SYNDROME [None]
  - ALVEOLITIS [None]
  - COAGULOPATHY [None]
  - DIALYSIS [None]
  - ELECTROLYTE IMBALANCE [None]
  - EPIDERMOLYSIS [None]
  - GENERAL PHYSICAL HEALTH DETERIORATION [None]
  - METABOLIC ACIDOSIS [None]
  - MULTI-ORGAN FAILURE [None]
  - NAUSEA [None]
  - PLEURAL EFFUSION [None]
  - SEPSIS [None]
  - SHOCK [None]
  - SOMNOLENCE [None]
  - TOXIC EPIDERMAL NECROLYSIS [None]
  - VOLUME BLOOD DECREASED [None]
  - VOMITING [None]
